FAERS Safety Report 12526159 (Version 2)
Quarter: 2016Q3

REPORT INFORMATION
  Report Type: Spontaneous
  Country: US (occurrence: US)
  Receive Date: 20160705
  Receipt Date: 20160810
  Transmission Date: 20161109
  Serious: No
  Sender: FDA-Public Use
  Company Number: US-PFIZER INC-2016312154

PATIENT
  Age: 60 Year
  Sex: Male

DRUGS (3)
  1. NEURONTIN [Suspect]
     Active Substance: GABAPENTIN
     Indication: NERVE INJURY
     Dosage: 100 MG, 3X/DAY
     Route: 048
  2. NEURONTIN [Suspect]
     Active Substance: GABAPENTIN
     Dosage: 100 MG, 4X/DAY
     Route: 048
     Dates: start: 20150909, end: 20160505
  3. GRALISE [Suspect]
     Active Substance: GABAPENTIN
     Indication: NERVE INJURY
     Dosage: 300 MG, 1X/DAY
     Dates: start: 20160516, end: 20160701

REACTIONS (4)
  - Feeling abnormal [Recovered/Resolved]
  - Anger [Recovered/Resolved]
  - Product use issue [Recovered/Resolved]
  - Irritability [Recovered/Resolved]

NARRATIVE: CASE EVENT DATE: 201509
